FAERS Safety Report 4620732-X (Version None)
Quarter: 2005Q1

REPORT INFORMATION
  Report Type: 
  Country: None (occurrence: None)
  Receive Date: 20050325
  Receipt Date: 20050318
  Transmission Date: 20050727
  Serious: Yes (Disabling, Other)
  Sender: FDA-Public Use
  Company Number: 2005037538

PATIENT
  Age: 42 Year
  Sex: Female
  Weight: 81.6475 kg

DRUGS (6)
  1. LIPITOR [Suspect]
     Indication: CORONARY ARTERY DISEASE
     Dosage: 1 IN 1 D, ORAL
     Route: 048
     Dates: start: 19980101, end: 20050201
  2. INSULIN [Concomitant]
  3. LEVOTHYROXINE SODIUM [Concomitant]
  4. CETIRIZINE HCL [Concomitant]
  5. INSULIN ASPART (INSULIN ASPART) [Concomitant]
  6. ASPIRIN [Concomitant]

REACTIONS (7)
  - ARTHRALGIA [None]
  - ASTHMA [None]
  - CARPAL TUNNEL SYNDROME [None]
  - INFLAMMATION [None]
  - LIGAMENT DISORDER [None]
  - TENDINOUS CONTRACTURE [None]
  - TENOSYNOVITIS [None]
